FAERS Safety Report 20162025 (Version 1)
Quarter: 2021Q4

REPORT INFORMATION
  Report Type: Spontaneous
  Country: RU (occurrence: RU)
  Receive Date: 20211208
  Receipt Date: 20211208
  Transmission Date: 20220303
  Serious: Yes (Death, Other)
  Sender: FDA-Public Use
  Company Number: RU-SLATE RUN PHARMACEUTICALS-21RU000825

PATIENT

DRUGS (3)
  1. AZITHROMYCIN [Suspect]
     Active Substance: AZITHROMYCIN
     Indication: SARS-CoV-2 test positive
     Dosage: UNK
     Dates: start: 2020
  2. AMOXICILLIN\CLAVULANATE POTASSIUM [Suspect]
     Active Substance: AMOXICILLIN\CLAVULANATE POTASSIUM
     Indication: SARS-CoV-2 test positive
     Dosage: UNK
     Dates: start: 2020
  3. KALETRA [Suspect]
     Active Substance: LOPINAVIR\RITONAVIR
     Indication: SARS-CoV-2 test positive
     Dosage: UNK
     Dates: start: 2020

REACTIONS (8)
  - Pneumonia viral [Fatal]
  - Acute respiratory distress syndrome [Fatal]
  - Stillbirth [Unknown]
  - Placental disorder [Unknown]
  - Placental insufficiency [Unknown]
  - Drug ineffective for unapproved indication [Unknown]
  - Maternal exposure during pregnancy [Unknown]
  - Off label use [Unknown]

NARRATIVE: CASE EVENT DATE: 20200101
